FAERS Safety Report 6154393-8 (Version None)
Quarter: 2009Q2

REPORT INFORMATION
  Report Type: 
  Country: None (occurrence: None)
  Receive Date: 20090414
  Receipt Date: 20090403
  Transmission Date: 20091009
  Serious: Yes (Other)
  Sender: FDA-Public Use
  Company Number: IE-ELI_LILLY_AND_COMPANY-IE200904001074

PATIENT
  Age: 34 Year
  Sex: Female

DRUGS (2)
  1. CYMBALTA [Suspect]
     Indication: DEPRESSION
     Dosage: 60 MG, UNK
  2. RISPERDAL [Concomitant]
     Dosage: 4 MG, UNK

REACTIONS (4)
  - DIZZINESS [None]
  - HEAD INJURY [None]
  - ORTHOSTATIC HYPOTENSION [None]
  - SYNCOPE [None]
